FAERS Safety Report 8326650-8 (Version None)
Quarter: 2012Q2

REPORT INFORMATION
  Report Type: 
  Country: None (occurrence: None)
  Receive Date: 20120501
  Receipt Date: 20090707
  Transmission Date: 20120825
  Serious: No
  Sender: FDA-Public Use
  Company Number: US-TEVA-2009008202

PATIENT
  Sex: Male
  Weight: 104.42 kg

DRUGS (11)
  1. NUVIGIL [Suspect]
     Indication: SLEEP APNOEA SYNDROME
     Dosage: 150 MILLIGRAM;
     Route: 048
     Dates: start: 20090701
  2. ALPRAZOLAM [Concomitant]
     Indication: DEPRESSION
     Dates: start: 20030101
  3. TRAMADOL HCL [Concomitant]
     Indication: OSTEOARTHRITIS
     Dates: start: 20080101
  4. LYRICA [Concomitant]
     Indication: FIBROMYALGIA
     Dates: start: 20080101
  5. SINGULAIR [Concomitant]
     Dates: start: 20080101
  6. NIASPAN [Concomitant]
     Dates: start: 20080101
  7. SUCRALFATE [Concomitant]
     Dates: start: 20090201
  8. PROTONIX EC [Concomitant]
     Dates: start: 20090101
  9. SEROQUEL [Concomitant]
     Indication: DEPRESSION
     Dates: start: 20080601
  10. ALLEGRA [Concomitant]
     Dates: start: 20070301
  11. AMLODIPINE BESYLATE [Concomitant]
     Dates: start: 20080101

REACTIONS (1)
  - DRUG INEFFECTIVE [None]
